FAERS Safety Report 20969773 (Version 1)
Quarter: 2022Q2

REPORT INFORMATION
  Report Type: Spontaneous
  Country: US (occurrence: US)
  Receive Date: 20220616
  Receipt Date: 20220616
  Transmission Date: 20220720
  Serious: No
  Sender: FDA-Public Use
  Company Number: US-JNJFOC-20220617927

PATIENT
  Age: 44 Year
  Sex: Female

DRUGS (17)
  1. ZYRTEC [Suspect]
     Active Substance: CETIRIZINE HYDROCHLORIDE
     Indication: Swelling face
     Route: 065
     Dates: start: 2022
  2. ZYRTEC [Suspect]
     Active Substance: CETIRIZINE HYDROCHLORIDE
     Indication: Urticaria
  3. ZYRTEC [Suspect]
     Active Substance: CETIRIZINE HYDROCHLORIDE
     Indication: Eyelid rash
  4. ZYRTEC [Suspect]
     Active Substance: CETIRIZINE HYDROCHLORIDE
     Indication: Facial pain
  5. ZYRTEC [Suspect]
     Active Substance: CETIRIZINE HYDROCHLORIDE
     Indication: Burning sensation
  6. COVID-19 VACCINE [Concomitant]
     Indication: Product used for unknown indication
     Dosage: LOCATION OF INJECTION: ARM
     Route: 065
     Dates: start: 20220315, end: 20220315
  7. COVID-19 VACCINE [Concomitant]
     Dosage: LOCATION OF INJECTION: ARM
     Route: 065
     Dates: start: 20220405, end: 20220405
  8. COVID-19 VACCINE [Concomitant]
     Route: 065
     Dates: start: 20220429
  9. TETANUS TOXOID, REDUCED DIPHTHERIA TOXOID AND ACELLULAR PERTUSSIS VACC [Concomitant]
     Active Substance: TETANUS TOXOID, REDUCED DIPHTHERIA TOXOID AND ACELLULAR PERTUSSIS VACCINE ADSORBED, TDAP
     Indication: Product used for unknown indication
     Route: 065
     Dates: start: 20220429
  10. CLARITIN [Concomitant]
     Active Substance: LORATADINE
     Indication: Swelling face
     Route: 065
     Dates: start: 2022
  11. CLARITIN [Concomitant]
     Active Substance: LORATADINE
     Indication: Urticaria
  12. CLARITIN [Concomitant]
     Active Substance: LORATADINE
     Indication: Eyelid rash
  13. CLARITIN [Concomitant]
     Active Substance: LORATADINE
     Indication: Facial pain
  14. CLARITIN [Concomitant]
     Active Substance: LORATADINE
     Indication: Burning sensation
  15. PREGABALIN [Concomitant]
     Active Substance: PREGABALIN
     Indication: Product used for unknown indication
     Route: 065
  16. ESTRADIOL [Concomitant]
     Active Substance: ESTRADIOL
     Indication: Product used for unknown indication
     Route: 065
  17. KEPPRA [Concomitant]
     Active Substance: LEVETIRACETAM
     Indication: Product used for unknown indication
     Route: 065

REACTIONS (3)
  - Product use in unapproved indication [Unknown]
  - Off label use [Unknown]
  - Overdose [Unknown]

NARRATIVE: CASE EVENT DATE: 20220101
